FAERS Safety Report 18555736 (Version 1)
Quarter: 2020Q4

REPORT INFORMATION
  Report Type: Spontaneous
  Country: US (occurrence: US)
  Receive Date: 20201127
  Receipt Date: 20201127
  Transmission Date: 20210114
  Serious: No
  Sender: FDA-Public Use
  Company Number: US-PFIZER INC-2019422147

PATIENT
  Age: 64 Year
  Sex: Female
  Weight: 124.74 kg

DRUGS (3)
  1. SUTENT [Suspect]
     Active Substance: SUNITINIB MALATE
     Indication: RENAL CELL CARCINOMA
     Dosage: 100 MG, (4 TABLETS A DAY)
  2. SUTENT [Suspect]
     Active Substance: SUNITINIB MALATE
     Indication: RENAL CANCER
     Dosage: 50 MG, UNK
  3. SUTENT [Suspect]
     Active Substance: SUNITINIB MALATE
     Dosage: 50 MG, CYCLIC (12.5MG; TAKE FOUR DAILY BY MOUTH FOR FOUR WEEKS AND THEN OFF FOR TWO WEEKS)
     Route: 048
     Dates: start: 201909, end: 202009

REACTIONS (9)
  - Arthralgia [Not Recovered/Not Resolved]
  - Feeling abnormal [Not Recovered/Not Resolved]
  - Periorbital swelling [Not Recovered/Not Resolved]
  - Rash macular [Recovering/Resolving]
  - Joint swelling [Unknown]
  - Off label use [Unknown]
  - Feeling cold [Not Recovered/Not Resolved]
  - Alopecia [Not Recovered/Not Resolved]
  - Memory impairment [Not Recovered/Not Resolved]
